FAERS Safety Report 10974336 (Version 1)
Quarter: 2015Q1

REPORT INFORMATION
  Report Type: Spontaneous
  Country: US (occurrence: None)
  Receive Date: 20150331
  Receipt Date: 20150331
  Transmission Date: 20150721
  Serious: No
  Sender: FDA-Public Use
  Company Number: None

PATIENT
  Age: 60 Year
  Sex: Female

DRUGS (1)
  1. IBRANCE [Suspect]
     Active Substance: PALBOCICLIB
     Indication: BREAST CANCER
     Dosage: DAILY FOR 21 DAYS ?WITH 7 DAYS OFF
     Route: 048
     Dates: start: 20150217

REACTIONS (2)
  - Bone operation [None]
  - White blood cell count decreased [None]

NARRATIVE: CASE EVENT DATE: 20150330
